FAERS Safety Report 10733510 (Version 2)
Quarter: 2015Q1

REPORT INFORMATION
  Report Type: Report from Study
  Country: DE (occurrence: DE)
  Receive Date: 20150123
  Receipt Date: 20150202
  Transmission Date: 20150721
  Serious: Yes (Hospitalization)
  Sender: FDA-Public Use
  Company Number: DE-PFIZER INC-2015000557

PATIENT
  Age: 42 Year
  Sex: Male
  Weight: 106 kg

DRUGS (13)
  1. KREON [Concomitant]
     Active Substance: PANCRELIPASE
     Dosage: 75000 IU, DAILY
     Dates: start: 20141216
  2. PANTOPRAZOLE [Concomitant]
     Active Substance: PANTOPRAZOLE SODIUM
     Dosage: 40 MG, DAILY
     Dates: start: 20141216
  3. ACICLOVIR [Concomitant]
     Active Substance: ACYCLOVIR
     Dosage: 400 MG, UNK
     Dates: start: 20141227
  4. CYTARABINE. [Concomitant]
     Active Substance: CYTARABINE
     Dosage: 4320 MG, UNK
     Dates: start: 20141222, end: 20141222
  5. METOCLOPRAMIDE. [Concomitant]
     Active Substance: METOCLOPRAMIDE
     Dosage: 20 MG, DAILY
     Dates: start: 20141216
  6. CERTOPARIN [Concomitant]
     Dosage: 3000 IU, DAILY
     Dates: start: 20141216, end: 20141227
  7. FOLIC ACID. [Concomitant]
     Active Substance: FOLIC ACID
     Dosage: 5 MG, DAILY
     Dates: start: 20141216
  8. TEMSIROLIMUS [Suspect]
     Active Substance: TEMSIROLIMUS
     Dosage: 25 MG, CYCLIC ON DAY 1 AND 8
     Dates: start: 20141219
  9. CISPLATIN. [Concomitant]
     Active Substance: CISPLATIN
     Dosage: 216 MG, UNK
     Dates: start: 20141221, end: 20141221
  10. RITUXIMAB [Concomitant]
     Active Substance: RITUXIMAB
     Dosage: 810 MG, UNK
     Dates: start: 20141220, end: 20141220
  11. PEGFILGRASTIM [Concomitant]
     Active Substance: PEGFILGRASTIM
     Dosage: 6 MG, DAILY
     Dates: start: 20141223, end: 20141223
  12. DEXAMETHASONE. [Concomitant]
     Active Substance: DEXAMETHASONE
     Dosage: 40 MG, UNK
     Dates: start: 20141221, end: 20141224
  13. COTRIMOXAZOL [Concomitant]
     Dosage: 960 MG, 2X/DAY, EVERY MONDAY AND EVERY THURSDAY
     Dates: start: 20141227

REACTIONS (1)
  - Febrile neutropenia [Recovered/Resolved]

NARRATIVE: CASE EVENT DATE: 20141231
